FAERS Safety Report 9442524 (Version 1)
Quarter: 2013Q3

REPORT INFORMATION
  Report Type: Spontaneous
  Country: US (occurrence: None)
  Receive Date: 20130805
  Receipt Date: 20130805
  Transmission Date: 20140515
  Serious: Yes (Life-Threatening, Hospitalization)
  Sender: FDA-Public Use
  Company Number: None

PATIENT
  Age: 61 Year
  Sex: Male
  Weight: 115 kg

DRUGS (2)
  1. VARDENAFIL [Suspect]
     Indication: ERECTILE DYSFUNCTION
     Dosage: 10 MG UD PO
     Route: 048
     Dates: end: 20090801
  2. SOTALOL [Suspect]
     Route: 048

REACTIONS (3)
  - Electrocardiogram QT prolonged [None]
  - Supraventricular tachycardia [None]
  - Palpitations [None]
